FAERS Safety Report 9415759 (Version 1)
Quarter: 2013Q3

REPORT INFORMATION
  Report Type: Spontaneous
  Country: AU (occurrence: AU)
  Receive Date: 20130724
  Receipt Date: 20130724
  Transmission Date: 20140515
  Serious: Yes (Hospitalization, Other)
  Sender: FDA-Public Use
  Company Number: AU-AMGEN-AUSSP2013037182

PATIENT
  Age: 36 Year
  Sex: Male
  Weight: 79 kg

DRUGS (10)
  1. NEULASTA [Suspect]
     Indication: PRODUCT USED FOR UNKNOWN INDICATION
     Dosage: 6 MG, ONCE
     Route: 058
     Dates: start: 20130302, end: 20130413
  2. BLEOMYCIN [Suspect]
     Indication: TESTIS CANCER
     Dosage: 30,000X 5, UNK, Q3WK
     Route: 042
     Dates: start: 20130225, end: 20130422
  3. ETOPOSIDE PHOSPHATE [Suspect]
     Indication: TESTIS CANCER
     Dosage: 220MG X5, Q3WK
     Route: 042
     Dates: start: 20130225, end: 20130412
  4. CISPLATIN [Suspect]
     Indication: TESTIS CANCER
     Dosage: 40 MG, Q3WK
     Route: 042
     Dates: start: 20130225, end: 20130412
  5. METOCLOPRAMIDE [Concomitant]
     Dosage: 10 MG, TDS
     Route: 048
  6. SODIBIC [Concomitant]
     Dosage: 10 ML, QID
     Route: 061
  7. PANTOPRAZOLE [Concomitant]
     Dosage: 40 MG, UNK
     Route: 048
  8. AUGMENTIN DUO [Concomitant]
     Dosage: 1 TABLET BD
     Route: 048
  9. NILSTAT                            /00036501/ [Concomitant]
     Dosage: 1 ML, QID
     Route: 048
  10. URAL                               /00049401/ [Concomitant]
     Dosage: 1 SACHET DAILY
     Route: 048

REACTIONS (7)
  - Febrile neutropenia [Recovered/Resolved]
  - Dysuria [Recovered/Resolved]
  - Feeling hot [Recovered/Resolved]
  - Hypotension [Recovered/Resolved]
  - Urosepsis [Unknown]
  - Back pain [Unknown]
  - Drug ineffective [Unknown]
